FAERS Safety Report 12345239 (Version 1)
Quarter: 2016Q2

REPORT INFORMATION
  Report Type: Spontaneous
  Country: US (occurrence: US)
  Receive Date: 20160507
  Receipt Date: 20160507
  Transmission Date: 20160815
  Serious: No
  Sender: FDA-Public Use
  Company Number: US-JNJFOC-20160403560

PATIENT
  Sex: Male
  Weight: 88 kg

DRUGS (3)
  1. XARELTO [Suspect]
     Active Substance: RIVAROXABAN
     Indication: DEEP VEIN THROMBOSIS
     Route: 048
     Dates: start: 2014, end: 2014
  2. XARELTO [Suspect]
     Active Substance: RIVAROXABAN
     Indication: DEEP VEIN THROMBOSIS
     Route: 048
     Dates: start: 2014, end: 201504
  3. HTZ [Concomitant]
     Indication: ANTICOAGULANT THERAPY
     Route: 065

REACTIONS (6)
  - Incorrect dose administered [Unknown]
  - Faeces discoloured [Recovered/Resolved]
  - Dyspepsia [Unknown]
  - Sensory disturbance [Not Recovered/Not Resolved]
  - Pain in extremity [Not Recovered/Not Resolved]
  - Adverse event [Not Recovered/Not Resolved]

NARRATIVE: CASE EVENT DATE: 2014
